FAERS Safety Report 19451931 (Version 1)
Quarter: 2021Q2

REPORT INFORMATION
  Report Type: Spontaneous
  Country: US (occurrence: US)
  Receive Date: 20210623
  Receipt Date: 20210623
  Transmission Date: 20210717
  Serious: Yes (Hospitalization)
  Sender: FDA-Public Use
  Company Number: None

PATIENT
  Age: 66 Year
  Sex: Female
  Weight: 108 kg

DRUGS (1)
  1. ASPIRIN. [Suspect]
     Active Substance: ASPIRIN
     Dates: end: 20200606

REACTIONS (7)
  - Vertigo [None]
  - Fall [None]
  - Nausea [None]
  - Radius fracture [None]
  - Vomiting [None]
  - Ulna fracture [None]
  - Concussion [None]

NARRATIVE: CASE EVENT DATE: 20210607
